FAERS Safety Report 10487310 (Version 2)
Quarter: 2014Q4

REPORT INFORMATION
  Report Type: Spontaneous
  Country: GB (occurrence: GB)
  Receive Date: 20141001
  Receipt Date: 20141010
  Transmission Date: 20150528
  Serious: Yes (Other)
  Sender: FDA-Public Use
  Company Number: GB-PFIZER INC-2014267334

PATIENT
  Sex: Female

DRUGS (1)
  1. DEPO-MEDRONE [Suspect]
     Active Substance: METHYLPREDNISOLONE
     Indication: TENOSYNOVITIS STENOSANS
     Dosage: 1 ML, UNK
     Route: 051

REACTIONS (6)
  - Product quality issue [Unknown]
  - Infection [Recovered/Resolved]
  - Hypersensitivity [Recovered/Resolved]
  - Incorrect route of drug administration [Unknown]
  - Erythema [Recovered/Resolved]
  - Pyrexia [Recovered/Resolved]

NARRATIVE: CASE EVENT DATE: 20140910
